FAERS Safety Report 9392316 (Version 5)
Quarter: 2013Q4

REPORT INFORMATION
  Report Type: Spontaneous
  Country: CA (occurrence: CA)
  Receive Date: 20130710
  Receipt Date: 20131225
  Transmission Date: 20140711
  Serious: Yes (Other)
  Sender: FDA-Public Use
  Company Number: CA-ROCHE-1247051

PATIENT
  Age: 18 Year
  Sex: Female

DRUGS (11)
  1. XOLAIR [Suspect]
     Indication: ASTHMA
     Route: 058
     Dates: start: 20100916
  2. XOLAIR [Suspect]
     Route: 058
     Dates: start: 20130429
  3. XOLAIR [Suspect]
     Route: 058
     Dates: start: 20130618
  4. XOLAIR [Suspect]
     Route: 065
     Dates: start: 20130813
  5. XOLAIR [Suspect]
     Route: 065
     Dates: start: 20131218
  6. SYMBICORT [Concomitant]
  7. SINGULAIR [Concomitant]
  8. VENTOLIN [Concomitant]
  9. ALVESCO [Concomitant]
  10. NASONEX [Concomitant]
  11. ATARAX (CANADA) [Concomitant]

REACTIONS (4)
  - Asthma [Unknown]
  - Respiratory tract congestion [Unknown]
  - Poor quality sleep [Unknown]
  - Fatigue [Unknown]
